FAERS Safety Report 9445508 (Version 4)
Quarter: 2013Q4

REPORT INFORMATION
  Report Type: Spontaneous
  Country: US (occurrence: None)
  Receive Date: 20130802
  Receipt Date: 20131009
  Transmission Date: 20140711
  Serious: Yes (Hospitalization, Other)
  Sender: FDA-Public Use
  Company Number: ADR-2007-3435

PATIENT
  Sex: Male

DRUGS (11)
  1. LIORESAL INTRATHECAL (BACLOFEN INJECTION) [Suspect]
     Indication: MUSCLE SPASTICITY
     Route: 037
  2. BACLOFEN [Suspect]
     Indication: MUSCLE SPASTICITY
  3. VALIUM [Concomitant]
  4. GUIAPHENASIN [Concomitant]
  5. SINGULAIR [Concomitant]
  6. ZYRTEC [Concomitant]
  7. PRILOSEC [Concomitant]
  8. NASACORT [Concomitant]
  9. ASTELIN [Concomitant]
  10. FLOVENT [Concomitant]
  11. NEUROTIN [Concomitant]

REACTIONS (15)
  - Nausea [None]
  - Vomiting [None]
  - Constipation [None]
  - Hypotonia [None]
  - Muscular weakness [None]
  - Muscle spasticity [None]
  - Dystonia [None]
  - Anal fissure [None]
  - Haemorrhage [None]
  - Feeling abnormal [None]
  - Mental disorder [None]
  - Hostility [None]
  - Fall [None]
  - Device malfunction [None]
  - Incorrect dose administered by device [None]
